FAERS Safety Report 17282192 (Version 15)
Quarter: 2022Q3

REPORT INFORMATION
  Report Type: Other
  Country: CA (occurrence: CA)
  Receive Date: 20200117
  Receipt Date: 20220729
  Transmission Date: 20221026
  Serious: Yes (Other)
  Sender: FDA-Public Use
  Company Number: CA-002147023-NVSC2019CA066257

PATIENT
  Age: 55 Year
  Sex: Female

DRUGS (12)
  1. XOLAIR [Suspect]
     Active Substance: OMALIZUMAB
     Indication: Chronic spontaneous urticaria
     Route: 058
     Dates: start: 20191209
  2. XOLAIR [Suspect]
     Active Substance: OMALIZUMAB
     Route: 058
     Dates: start: 20200106
  3. XOLAIR [Suspect]
     Active Substance: OMALIZUMAB
     Route: 058
     Dates: start: 20200330, end: 20200922
  4. XOLAIR [Suspect]
     Active Substance: OMALIZUMAB
     Route: 058
     Dates: start: 20211019
  5. BENADRYL [Concomitant]
     Active Substance: DIPHENHYDRAMINE HYDROCHLORIDE
     Indication: Urticaria
     Dosage: 2 DF, QD
     Route: 048
     Dates: start: 201904
  6. BILASTINE [Concomitant]
     Active Substance: BILASTINE
     Indication: Urticaria
     Dosage: 2 DF, BID
     Route: 048
     Dates: start: 20191003
  7. BILASTINE [Concomitant]
     Active Substance: BILASTINE
     Dosage: (1 TABLET IN THE MORNING AND 2 TABLETS AT BEDTIME FOR 1 WEEK AND THEN 1 TABLET IN THE MORNING AND 1
     Route: 048
  8. ATARAX [Concomitant]
     Active Substance: HYDROXYZINE HYDROCHLORIDE
     Indication: Urticaria
     Dosage: 1 DF, BID
     Route: 048
  9. ZANTAC [Concomitant]
     Active Substance: RANITIDINE HYDROCHLORIDE
     Indication: Urticaria
     Dosage: 1 DF, QD
     Route: 048
  10. SINEQUAN [Concomitant]
     Active Substance: DOXEPIN HYDROCHLORIDE
     Indication: Urticaria
     Dosage: 3 DF, QD
     Route: 048
  11. ATIVAN [Concomitant]
     Active Substance: LORAZEPAM
     Indication: Anxiety
     Dosage: 1 DF, PRN
     Route: 048
  12. CLARITIN [Concomitant]
     Active Substance: LORATADINE
     Indication: Urticaria
     Dosage: 2 DF, BID
     Route: 048
     Dates: start: 20191003, end: 20191003

REACTIONS (15)
  - Injection site hypoaesthesia [Recovered/Resolved]
  - Hypersensitivity [Unknown]
  - Urticaria [Recovered/Resolved]
  - Headache [Recovered/Resolved]
  - Malaise [Unknown]
  - COVID-19 [Unknown]
  - Asthma [Unknown]
  - Influenza [Unknown]
  - Cough [Unknown]
  - Condition aggravated [Unknown]
  - Skin plaque [Recovering/Resolving]
  - Weight increased [Unknown]
  - Dizziness [Recovered/Resolved]
  - Nasopharyngitis [Unknown]
  - Blood pressure increased [Not Recovered/Not Resolved]

NARRATIVE: CASE EVENT DATE: 20191209
